FAERS Safety Report 14366269 (Version 1)
Quarter: 2018Q1

REPORT INFORMATION
  Report Type: Spontaneous
  Country: FR (occurrence: FR)
  Receive Date: 20180109
  Receipt Date: 20180109
  Transmission Date: 20180509
  Serious: Yes (Other)
  Sender: FDA-Public Use
  Company Number: FR-MERCK KGAA-2039702

PATIENT
  Age: 69 Year
  Sex: Female

DRUGS (5)
  1. STAGID [Concomitant]
     Active Substance: METFORMIN PAMOATE
  2. NOVOTHYROX [Suspect]
     Active Substance: LEVOTHYROXINE SODIUM
     Indication: AUTOIMMUNE THYROIDITIS
     Dates: start: 201706, end: 20171215
  3. SIMVASTATIN. [Concomitant]
     Active Substance: SIMVASTATIN
  4. KARDEGIC [Concomitant]
     Active Substance: ASPIRIN DL-LYSINE
  5. GLICLAZIDE [Concomitant]
     Active Substance: GLICLAZIDE

REACTIONS (9)
  - Gait disturbance [None]
  - Dyspnoea [None]
  - Fatigue [None]
  - Headache [None]
  - Chest discomfort [None]
  - Pain in extremity [None]
  - Alopecia [None]
  - Blood thyroid stimulating hormone increased [None]
  - Diabetes mellitus inadequate control [None]

NARRATIVE: CASE EVENT DATE: 2017
